FAERS Safety Report 25172260 (Version 1)
Quarter: 2025Q2

REPORT INFORMATION
  Report Type: Spontaneous
  Country: US (occurrence: US)
  Receive Date: 20250408
  Receipt Date: 20250408
  Transmission Date: 20250717
  Serious: No
  Sender: AMGEN
  Company Number: US-AMGEN-USASP2025066622

PATIENT
  Sex: Male

DRUGS (1)
  1. AIMOVIG [Suspect]
     Active Substance: ERENUMAB-AOOE
     Indication: Migraine prophylaxis
     Dosage: 140 MILLIGRAM, QMO (ONCE EVERY 28 DAYS)
     Route: 065
     Dates: start: 20250312

REACTIONS (3)
  - Constipation [Recovered/Resolved]
  - Therapeutic response shortened [Unknown]
  - Headache [Unknown]
